FAERS Safety Report 9402016 (Version 2)
Quarter: 2013Q3

REPORT INFORMATION
  Report Type: Report from Study
  Country: TR (occurrence: TR)
  Receive Date: 20130716
  Receipt Date: 20130725
  Transmission Date: 20140515
  Serious: Yes (Hospitalization)
  Sender: FDA-Public Use
  Company Number: PHHY2013TR074424

PATIENT
  Age: 41 Year
  Sex: Male

DRUGS (4)
  1. SANDOSTATIN LAR [Suspect]
     Indication: ACROMEGALY
     Dosage: 30 MG, ONCE EVERY 28 DAYS
  2. NORVASC [Concomitant]
     Dosage: 5 MG, 1X1
     Route: 048
  3. LEVOTIRON [Concomitant]
     Dosage: 1X1
     Route: 048
  4. LEVOTIRON [Concomitant]
     Dosage: 1X1.5
     Route: 048

REACTIONS (2)
  - Thyroid cancer [Recovered/Resolved]
  - Cholelithiasis [Recovered/Resolved]
